FAERS Safety Report 9491328 (Version 1)
Quarter: 2013Q3

REPORT INFORMATION
  Report Type: Report from Study
  Country: CA (occurrence: CA)
  Receive Date: 20130830
  Receipt Date: 20130830
  Transmission Date: 20140515
  Serious: Yes (Other)
  Sender: FDA-Public Use
  Company Number: CA-JNJFOC-20130815783

PATIENT
  Age: 54 Year
  Sex: Female
  Weight: 94 kg

DRUGS (2)
  1. REMICADE [Suspect]
     Indication: PSORIATIC ARTHROPATHY
     Route: 042
     Dates: start: 2013
  2. REMICADE [Suspect]
     Indication: PSORIASIS
     Route: 042
     Dates: start: 2013

REACTIONS (2)
  - Depression [Unknown]
  - Alopecia [Unknown]
